FAERS Safety Report 9115093 (Version 2)
Quarter: 2013Q2

REPORT INFORMATION
  Report Type: Spontaneous
  Country: US (occurrence: None)
  Receive Date: 20130125
  Receipt Date: 20130520
  Transmission Date: 20140414
  Serious: No
  Sender: FDA-Public Use
  Company Number: 2013-00085

PATIENT
  Age: 79 Year
  Sex: Male
  Weight: 83.92 kg

DRUGS (8)
  1. ZICAM ULTRA COLD REMEDY LOZENGES [Suspect]
     Indication: NASOPHARYNGITIS
     Dosage: 1 LOZENGE EVERY 4 HOURS
     Dates: start: 20130328, end: 20130330
  2. LISINOPRIL [Concomitant]
  3. FLOMAX [Concomitant]
  4. AVODART [Concomitant]
  5. PRESERVISION [Concomitant]
  6. MEGA MEN^S MULTIVITAMIN [Concomitant]
  7. TRIFLEX [Concomitant]
  8. ECOTRIN [Concomitant]

REACTIONS (2)
  - Dysgeusia [None]
  - Asthma [None]
